FAERS Safety Report 8584642-8 (Version None)
Quarter: 2012Q3

REPORT INFORMATION
  Report Type: 
  Country: None (occurrence: None)
  Receive Date: 20120810
  Receipt Date: 20120808
  Transmission Date: 20120928
  Serious: Yes (Death, Hospitalization)
  Sender: FDA-Public Use
  Company Number: TN-BAYER-2012-080281

PATIENT
  Age: 70 Year
  Sex: Female
  Weight: 65 kg

DRUGS (1)
  1. ULTRAVIST 150 [Suspect]
     Indication: ABDOMEN SCAN
     Dosage: 120 ML, ONCE
     Dates: start: 20120720, end: 20120720

REACTIONS (2)
  - RESPIRATORY FAILURE [None]
  - OEDEMA PERIPHERAL [None]
